FAERS Safety Report 7356294-6 (Version None)
Quarter: 2011Q1

REPORT INFORMATION
  Report Type: 
  Country: None (occurrence: None)
  Receive Date: 20110316
  Receipt Date: 20110303
  Transmission Date: 20110831
  Serious: Yes (Hospitalization)
  Sender: FDA-Public Use
  Company Number: GB-GENENTECH-314194

PATIENT
  Sex: Female

DRUGS (11)
  1. RITUXIMAB [Suspect]
     Indication: RHEUMATOID ARTHRITIS
     Dosage: UNK
     Route: 065
     Dates: start: 20080101
  2. GTN SPRAY [Concomitant]
     Indication: CHEST PAIN
     Dosage: 2 DF, PRN
  3. CO-CODAMOL [Concomitant]
     Indication: PAIN
     Dosage: UNK
     Route: 048
  4. CLOPIDOGREL [Concomitant]
     Indication: PRODUCT USED FOR UNKNOWN INDICATION
     Dosage: UNK
  5. LEFLUNOMIDE [Concomitant]
     Indication: PRODUCT USED FOR UNKNOWN INDICATION
     Dosage: 20 MG, UNK
  6. CODEINE [Concomitant]
     Indication: PRODUCT USED FOR UNKNOWN INDICATION
     Dosage: UNK
  7. BISOPROLOL [Concomitant]
     Indication: MYOCARDIAL ISCHAEMIA
     Dosage: 10 MG, QD
     Route: 048
  8. METHOTREXATE [Concomitant]
     Indication: PRODUCT USED FOR UNKNOWN INDICATION
     Dosage: UNK
  9. TOCILIZUMAB [Suspect]
     Indication: PRODUCT USED FOR UNKNOWN INDICATION
     Dosage: UNK
     Route: 042
     Dates: start: 20110110
  10. THYROXINE [Concomitant]
     Indication: BASEDOW'S DISEASE
     Dosage: 100 A?G, QD
     Route: 048
  11. OMEPRAZOLE [Concomitant]
     Indication: DYSPEPSIA
     Dosage: 20 MG, QD
     Route: 048

REACTIONS (6)
  - POSTERIOR REVERSIBLE ENCEPHALOPATHY SYNDROME [None]
  - NECK PAIN [None]
  - SEPSIS [None]
  - RASH [None]
  - STAPHYLOCOCCAL BACTERAEMIA [None]
  - DRUG RESISTANCE [None]
